APPROVED DRUG PRODUCT: ESTRADIOL AND NORGESTIMATE
Active Ingredient: ESTRADIOL; NORGESTIMATE
Strength: 1MG,1MG;N/A,0.09MG
Dosage Form/Route: TABLET;ORAL
Application: A076812 | Product #001
Applicant: BARR LABORATORIES INC
Approved: Apr 29, 2005 | RLD: No | RS: No | Type: DISCN